FAERS Safety Report 6782191-0 (Version None)
Quarter: 2010Q2

REPORT INFORMATION
  Report Type: 
  Country: None (occurrence: None)
  Receive Date: 20100621
  Receipt Date: 20100617
  Transmission Date: 20101027
  Serious: Yes (Death)
  Sender: FDA-Public Use
  Company Number: US-ASTRAZENECA-2010SE23378

PATIENT
  Age: 12567 Day
  Sex: Male

DRUGS (5)
  1. SEROQUEL XR [Suspect]
     Indication: BIPOLAR I DISORDER
     Route: 048
     Dates: start: 20090101, end: 20100506
  2. OMEPRAZOLE [Concomitant]
  3. TEGRETOL [Concomitant]
  4. DILANTIN [Concomitant]
  5. LEXAPRO [Concomitant]

REACTIONS (1)
  - CONVULSION [None]
